FAERS Safety Report 14897331 (Version 3)
Quarter: 2018Q2

REPORT INFORMATION
  Report Type: Report from Study
  Country: US (occurrence: US)
  Receive Date: 20180515
  Receipt Date: 20180530
  Transmission Date: 20180711
  Serious: Yes (Hospitalization)
  Sender: FDA-Public Use
  Company Number: US-PUMA BIOTECHNOLOGY, LTD.-2018US004796

PATIENT

DRUGS (2)
  1. NERLYNX [Suspect]
     Active Substance: NERATINIB
     Indication: BREAST CANCER FEMALE
     Dosage: 240 MG, DAILY
     Route: 048
     Dates: start: 20180307
  2. NERLYNX [Suspect]
     Active Substance: NERATINIB
     Dosage: 160 MG (4 TABLETS), DAILY
     Route: 048
     Dates: start: 20180406

REACTIONS (5)
  - Anaemia [Not Recovered/Not Resolved]
  - Malaise [Unknown]
  - Fall [Unknown]
  - Diarrhoea [Unknown]
  - Underdose [Unknown]
